FAERS Safety Report 8170982-3 (Version None)
Quarter: 2012Q1

REPORT INFORMATION
  Report Type: 
  Country: None (occurrence: None)
  Receive Date: 20120228
  Receipt Date: 20120120
  Transmission Date: 20120608
  Serious: Yes (Hospitalization)
  Sender: FDA-Public Use
  Company Number: AU-COVIDIEN/TYCO HEALTHCARE/MALLINCKRODT-T201101169

PATIENT
  Sex: Female
  Weight: 54 kg

DRUGS (5)
  1. EXALGO [Suspect]
     Indication: VISCERAL PAIN
     Dosage: 8 MG, UNK
     Route: 048
  2. OXYCODONE HCL [Suspect]
     Dosage: 40-60 MG, BID
     Route: 065
  3. GABAPENTIN [Suspect]
     Indication: ABDOMINAL PAIN
  4. OXYCODONE HCL [Suspect]
     Indication: ABDOMINAL PAIN
     Dosage: 30 MG, BID
  5. EXALGO [Suspect]
     Dosage: 4 MG, UNK
     Route: 048

REACTIONS (3)
  - WITHDRAWAL SYNDROME [None]
  - HYPONATRAEMIA [None]
  - MYOCLONUS [None]
